FAERS Safety Report 13125801 (Version 1)
Quarter: 2017Q1

REPORT INFORMATION
  Report Type: Spontaneous
  Country: US (occurrence: US)
  Receive Date: 20170117
  Receipt Date: 20170117
  Transmission Date: 20170428
  Serious: Yes (Disabling)
  Sender: FDA-Public Use
  Company Number: None

PATIENT
  Age: 67 Year
  Sex: Female
  Weight: 63 kg

DRUGS (7)
  1. SEOQUEL [Concomitant]
  2. FISH OIL [Concomitant]
     Active Substance: FISH OIL
  3. QUETIAPINE FUMARATE. [Suspect]
     Active Substance: QUETIAPINE FUMARATE
     Indication: BIPOLAR DISORDER
     Dosage: ?          QUANTITY:15 TABLET(S);?
     Route: 048
     Dates: start: 20160506, end: 20160818
  4. GLUCOSAMINE [Concomitant]
     Active Substance: GLUCOSAMINE
  5. SERTRALINE [Concomitant]
     Active Substance: SERTRALINE HYDROCHLORIDE
  6. DAILY VITAMINS [Concomitant]
  7. CALCIUM [Concomitant]
     Active Substance: CALCIUM

REACTIONS (7)
  - Pain [None]
  - Product substitution issue [None]
  - Affective disorder [None]
  - Sleep disorder [None]
  - Asthenia [None]
  - Arthralgia [None]
  - Activities of daily living impaired [None]

NARRATIVE: CASE EVENT DATE: 20160515
